FAERS Safety Report 12600586 (Version 1)
Quarter: 2016Q3

REPORT INFORMATION
  Report Type: Not Available
  Country: None (occurrence: US)
  Receive Date: 20160727
  Receipt Date: 20160727
  Transmission Date: 20161109
  Serious: Yes (Other)
  Sender: FDA-Public Use
  Company Number: US-AKORN-35067

PATIENT
  Sex: Male

DRUGS (1)
  1. VANCOMYCIN HCL 125MG [Suspect]
     Active Substance: VANCOMYCIN HYDROCHLORIDE

REACTIONS (7)
  - Cystoid macular oedema [Unknown]
  - Retinal vein occlusion [Unknown]
  - Dizziness [Unknown]
  - Autonomic nervous system imbalance [Unknown]
  - Vertigo [Unknown]
  - Discomfort [Unknown]
  - Photopsia [Unknown]
